FAERS Safety Report 23194732 (Version 2)
Quarter: 2023Q4

REPORT INFORMATION
  Report Type: Report from Study
  Country: GR (occurrence: GR)
  Receive Date: 20231117
  Receipt Date: 20231212
  Transmission Date: 20240110
  Serious: Yes (Hospitalization)
  Sender: FDA-Public Use
  Company Number: GR-ABBVIE-5496385

PATIENT
  Age: 60 Year
  Sex: Female

DRUGS (2)
  1. CARBIDOPA\LEVODOPA [Suspect]
     Active Substance: CARBIDOPA\LEVODOPA
     Indication: Parkinson^s disease
     Dosage: MORNING DOSE: 10.0ML; CONTINUOUS RATE: 3.0ML/H; EXTRA DOSE: 1.1ML?STOP DATE-2023
     Route: 050
     Dates: start: 20231110
  2. CARBIDOPA\LEVODOPA [Suspect]
     Active Substance: CARBIDOPA\LEVODOPA
     Dosage: MORNING DOSE: 7.0ML; CONTINUOUS RATE: 3.0ML/H; EXTRA DOSE: 1.1ML?START DATE-2023
     Route: 050

REACTIONS (1)
  - C-reactive protein increased [Unknown]
